FAERS Safety Report 24291664 (Version 1)
Quarter: 2024Q3

REPORT INFORMATION
  Report Type: Spontaneous
  Country: US (occurrence: None)
  Receive Date: 20240906
  Receipt Date: 20240906
  Transmission Date: 20241017
  Serious: No
  Sender: DOMPE FARMACEUTICI
  Company Number: US-FARMAPROD-202308-202310-2932

PATIENT
  Age: 59 Year
  Sex: Male

DRUGS (7)
  1. OXERVATE [Suspect]
     Active Substance: CENEGERMIN-BKBJ
     Indication: Neurotrophic keratopathy
     Route: 047
     Dates: start: 20230925
  2. BENZOYL PEROXIDE\ERYTHROMYCIN [Concomitant]
     Active Substance: BENZOYL PEROXIDE\ERYTHROMYCIN
  3. PRED FORTE [Concomitant]
     Active Substance: PREDNISOLONE ACETATE
  4. ATORVASTATIN CALCIUM [Concomitant]
     Active Substance: ATORVASTATIN CALCIUM
  5. LISINOPRIL [Concomitant]
     Active Substance: LISINOPRIL
  6. ALLOPURINOL [Concomitant]
     Active Substance: ALLOPURINOL
  7. PANTOPRAZOLE SODIUM [Concomitant]
     Active Substance: PANTOPRAZOLE SODIUM

REACTIONS (1)
  - Product storage error [Recovered/Resolved]

NARRATIVE: CASE EVENT DATE: 20230927
